FAERS Safety Report 14022705 (Version 1)
Quarter: 2017Q3

REPORT INFORMATION
  Report Type: Spontaneous
  Country: US (occurrence: US)
  Receive Date: 20170928
  Receipt Date: 20170928
  Transmission Date: 20171128
  Serious: No
  Sender: FDA-Public Use
  Company Number: US-SA-2016SA172117

PATIENT
  Age: 58 Year
  Sex: Female

DRUGS (14)
  1. LEVOTHYROXINE. [Concomitant]
     Active Substance: LEVOTHYROXINE
  2. OMEPRAZOLE. [Concomitant]
     Active Substance: OMEPRAZOLE
  3. TAMSULOSIN [Concomitant]
     Active Substance: TAMSULOSIN
  4. NICOTINE. [Concomitant]
     Active Substance: NICOTINE
  5. CITALOPRAM [Concomitant]
     Active Substance: CITALOPRAM HYDROBROMIDE
  6. FLUTICASONE. [Concomitant]
     Active Substance: FLUTICASONE
  7. LOVASTATIN. [Concomitant]
     Active Substance: LOVASTATIN
  8. GABAPENTIN. [Concomitant]
     Active Substance: GABAPENTIN
  9. BUPROPION. [Concomitant]
     Active Substance: BUPROPION
  10. AUBAGIO [Suspect]
     Active Substance: TERIFLUNOMIDE
     Indication: MULTIPLE SCLEROSIS
     Route: 048
     Dates: start: 201608
  11. CLONAZEPAM. [Concomitant]
     Active Substance: CLONAZEPAM
  12. PREMPRO [Concomitant]
     Active Substance: ESTROGENS, CONJUGATED\MEDROXYPROGESTERONE ACETATE
  13. DICLOFENAC [Concomitant]
     Active Substance: DICLOFENAC
  14. ZOLPIDEM [Concomitant]
     Active Substance: ZOLPIDEM\ZOLPIDEM TARTRATE

REACTIONS (3)
  - Pain [Unknown]
  - Alopecia [Unknown]
  - Rash [Unknown]

NARRATIVE: CASE EVENT DATE: 201609
